FAERS Safety Report 5163911-8 (Version None)
Quarter: 2006Q4

REPORT INFORMATION
  Report Type: 
  Country: None (occurrence: None)
  Receive Date: 20061204
  Receipt Date: 20061031
  Transmission Date: 20070319
  Serious: Yes (Disabling)
  Sender: FDA-Public Use
  Company Number: 2006AP05533

PATIENT
  Age: 28 Year
  Sex: Female

DRUGS (2)
  1. ANAPEINE [Suspect]
     Indication: EPIDURAL ANAESTHESIA
     Route: 008
  2. MARCAINE [Suspect]
     Indication: SPINAL ANAESTHESIA
     Route: 037

REACTIONS (1)
  - CAUDA EQUINA SYNDROME [None]
